FAERS Safety Report 7807543-9 (Version None)
Quarter: 2011Q4

REPORT INFORMATION
  Report Type: 
  Country: None (occurrence: None)
  Receive Date: 20111011
  Receipt Date: 20111005
  Transmission Date: 20120403
  Serious: Yes (Hospitalization)
  Sender: FDA-Public Use
  Company Number: US-GLAXOSMITHKLINE-A0948345A

PATIENT
  Age: 63 Year
  Sex: Male
  Weight: 115.9 kg

DRUGS (9)
  1. ACCUPRIL [Concomitant]
  2. HYDROCHLOROTHIAZIDE [Concomitant]
  3. NEXIUM [Concomitant]
  4. METFORMIN HYDROCHLORIDE [Concomitant]
  5. LIPITOR [Concomitant]
  6. LASIX [Concomitant]
  7. CARDURA [Concomitant]
  8. INSULIN [Concomitant]
  9. AVANDIA [Suspect]
     Indication: DIABETES MELLITUS
     Dosage: 4MG TWICE PER DAY
     Route: 048
     Dates: start: 20010101, end: 20071201

REACTIONS (2)
  - CEREBROVASCULAR ACCIDENT [None]
  - TRANSIENT ISCHAEMIC ATTACK [None]
